FAERS Safety Report 10611313 (Version 1)
Quarter: 2014Q4

REPORT INFORMATION
  Report Type: Spontaneous
  Country: BE (occurrence: BE)
  Receive Date: 20141126
  Receipt Date: 20141126
  Transmission Date: 20150529
  Serious: Yes (Life-Threatening, Hospitalization)
  Sender: FDA-Public Use
  Company Number: BE-ROXANE LABORATORIES, INC.-2014-BI-56454GD

PATIENT
  Age: 49 Year
  Sex: Female

DRUGS (4)
  1. METOCLOPRAMIDE. [Suspect]
     Active Substance: METOCLOPRAMIDE
     Indication: PRODUCT USED FOR UNKNOWN INDICATION
     Route: 065
  2. MORPHINE [Suspect]
     Active Substance: MORPHINE
     Indication: PRODUCT USED FOR UNKNOWN INDICATION
     Route: 065
  3. MACROGOL [Suspect]
     Active Substance: POLYETHYLENE GLYCOLS
     Indication: COLONIC LAVAGE
     Route: 065
  4. CODEINE [Suspect]
     Active Substance: CODEINE
     Indication: PRODUCT USED FOR UNKNOWN INDICATION
     Route: 065

REACTIONS (10)
  - Oesophageal obstruction [Recovered/Resolved]
  - Toxicity to various agents [Unknown]
  - Stupor [Unknown]
  - Bradypnoea [Unknown]
  - Miosis [Unknown]
  - Depressed level of consciousness [Unknown]
  - Abdominal discomfort [Unknown]
  - Obstruction gastric [Recovered/Resolved]
  - Tachycardia [Unknown]
  - Hypertension [Unknown]
